FAERS Safety Report 10217532 (Version 1)
Quarter: 2014Q2

REPORT INFORMATION
  Report Type: Spontaneous
  Country: FI (occurrence: FI)
  Receive Date: 20140604
  Receipt Date: 20140604
  Transmission Date: 20141212
  Serious: Yes (Hospitalization)
  Sender: FDA-Public Use
  Company Number: FI-MYLANLABS-2014S1012452

PATIENT
  Age: 79 Year
  Sex: Female

DRUGS (10)
  1. PRAMIPEXOLE [Suspect]
     Indication: PARKINSON^S DISEASE
  2. SELEGILINE [Suspect]
     Indication: PARKINSON^S DISEASE
  3. ENTACAPONE [Suspect]
     Indication: PARKINSON^S DISEASE
  4. LEVODOPA [Suspect]
     Indication: PARKINSON^S DISEASE
  5. LEVODOPA [Suspect]
     Indication: PARKINSON^S DISEASE
  6. LEVODOPA [Suspect]
     Indication: PARKINSON^S DISEASE
  7. RIVASTIGMINE [Suspect]
     Indication: PARKINSON^S DISEASE
  8. CARBIDOPA [Suspect]
     Indication: PARKINSON^S DISEASE
  9. THYROXIN [Concomitant]
     Indication: HYPOTHYROIDISM
  10. VITAMIN B12 [Concomitant]
     Indication: HYPOVITAMINOSIS

REACTIONS (5)
  - Tremor [Unknown]
  - Musculoskeletal stiffness [Unknown]
  - Hypokinesia [Unknown]
  - Dyskinesia [Unknown]
  - Incorrect dose administered [Unknown]
